FAERS Safety Report 17891194 (Version 1)
Quarter: 2020Q2

REPORT INFORMATION
  Report Type: Spontaneous
  Country: US (occurrence: US)
  Receive Date: 20200612
  Receipt Date: 20200612
  Transmission Date: 20200714
  Serious: No
  Sender: FDA-Public Use
  Company Number: US-PERRIGO-20US000447

PATIENT
  Age: 69 Year
  Sex: Male
  Weight: 83.9 kg

DRUGS (4)
  1. MINOXIDIL. [Suspect]
     Active Substance: MINOXIDIL
     Indication: ALOPECIA
     Dosage: 1/2 CAPFUL, BID
     Route: 061
     Dates: start: 20191205, end: 20200105
  2. METOPROLOL. [Concomitant]
     Active Substance: METOPROLOL
     Indication: HYPERTENSION
     Dosage: UNK
     Route: 065
     Dates: start: 201901
  3. NORVASC [Concomitant]
     Active Substance: AMLODIPINE BESYLATE
     Indication: HYPERTENSION
     Dosage: 2.5 MG
     Route: 065
     Dates: start: 201901
  4. MINOXIDIL. [Suspect]
     Active Substance: MINOXIDIL
     Dosage: 1/2 CAPFUL, SINGLE
     Route: 061
     Dates: start: 20200107, end: 20200107

REACTIONS (2)
  - Product dose omission [Recovered/Resolved]
  - Alopecia [Not Recovered/Not Resolved]

NARRATIVE: CASE EVENT DATE: 20191225
